FAERS Safety Report 21816826 (Version 1)
Quarter: 2023Q1

REPORT INFORMATION
  Report Type: Spontaneous
  Country: US (occurrence: None)
  Receive Date: 20230103
  Receipt Date: 20230103
  Transmission Date: 20230418
  Serious: Yes (Life-Threatening, Hospitalization, Disabling, Other)
  Sender: FDA-Public Use
  Company Number: None

PATIENT
  Age: 7 Year
  Sex: Female

DRUGS (1)
  1. FLOVENT HFA [Suspect]
     Active Substance: FLUTICASONE PROPIONATE
     Indication: Asthma
     Dates: start: 20190331, end: 20220318

REACTIONS (5)
  - Vomiting [None]
  - Unresponsive to stimuli [None]
  - Brain oedema [None]
  - Adrenal insufficiency [None]
  - Brain injury [None]

NARRATIVE: CASE EVENT DATE: 20211026
